FAERS Safety Report 13028628 (Version 1)
Quarter: 2016Q4

REPORT INFORMATION
  Report Type: Spontaneous
  Country: JP (occurrence: JP)
  Receive Date: 20161214
  Receipt Date: 20161214
  Transmission Date: 20170207
  Serious: Yes (Other)
  Sender: FDA-Public Use
  Company Number: JP-PFIZER INC-2016572803

PATIENT
  Age: 72 Year
  Sex: Female

DRUGS (1)
  1. DALACIN S [Suspect]
     Active Substance: CLINDAMYCIN PHOSPHATE

REACTIONS (2)
  - Delirium [Unknown]
  - Restlessness [Unknown]
